FAERS Safety Report 8143262-X (Version None)
Quarter: 2012Q1

REPORT INFORMATION
  Report Type: 
  Country: None (occurrence: None)
  Receive Date: 20120217
  Receipt Date: 20120213
  Transmission Date: 20120608
  Serious: Yes (Other)
  Sender: FDA-Public Use
  Company Number: BR-PFIZER INC-2012039613

PATIENT
  Age: 67 Year
  Sex: Male

DRUGS (3)
  1. BETNOVATE [Suspect]
     Indication: BACTERIAL INFECTION
     Dosage: UNK
  2. BACITRACIN [Suspect]
     Dosage: UNK
  3. VIAGRA [Suspect]
     Indication: SEXUAL DYSFUNCTION
     Dosage: 50 MG, MONTHLY (ONE EVERY WEEK)

REACTIONS (4)
  - PENILE INFECTION [None]
  - FATIGUE [None]
  - DRUG INEFFECTIVE [None]
  - THERAPEUTIC RESPONSE UNEXPECTED [None]
